FAERS Safety Report 16844254 (Version 1)
Quarter: 2019Q3

REPORT INFORMATION
  Report Type: Spontaneous
  Country: US (occurrence: US)
  Receive Date: 20190924
  Receipt Date: 20190924
  Transmission Date: 20191005
  Serious: Yes (Other)
  Sender: FDA-Public Use
  Company Number: US-RECORDATI RARE DISEASES INC.-US-R13005-19-00277

PATIENT
  Age: 58 Year
  Sex: Female

DRUGS (1)
  1. HEMIN [Suspect]
     Active Substance: HEMIN
     Indication: PORPHYRIA ACUTE
     Route: 065

REACTIONS (7)
  - Phlebotomy [Unknown]
  - Iron overload [Unknown]
  - Splenomegaly [Unknown]
  - Chronic kidney disease [Unknown]
  - Renal and liver transplant [Unknown]
  - Portal hypertension [Unknown]
  - Hepatic enzyme increased [Unknown]
